FAERS Safety Report 11615114 (Version 3)
Quarter: 2016Q1

REPORT INFORMATION
  Report Type: Report from Study
  Country: GB (occurrence: GB)
  Receive Date: 20151009
  Receipt Date: 20160219
  Transmission Date: 20160525
  Serious: No
  Sender: FDA-Public Use
  Company Number: GB-ROCHE-1643848

PATIENT
  Sex: Female

DRUGS (1)
  1. ROACTEMRA [Suspect]
     Active Substance: TOCILIZUMAB
     Indication: RHEUMATOID ARTHRITIS
     Route: 058
     Dates: start: 20150127

REACTIONS (3)
  - Vomiting [Unknown]
  - Malaise [Unknown]
  - Weight decreased [Unknown]
